FAERS Safety Report 10217164 (Version 1)
Quarter: 2014Q2

REPORT INFORMATION
  Report Type: Spontaneous
  Country: IR (occurrence: IR)
  Receive Date: 20140604
  Receipt Date: 20140604
  Transmission Date: 20141212
  Serious: Yes (Hospitalization)
  Sender: FDA-Public Use
  Company Number: PHHY2014IR064346

PATIENT
  Age: 40 Year
  Sex: Female

DRUGS (7)
  1. OXALIPLATIN [Suspect]
     Indication: ADENOCARCINOMA OF COLON
     Route: 042
  2. OXALIPLATIN [Suspect]
     Route: 042
     Dates: start: 20130614
  3. FLUOROURACIL [Concomitant]
     Indication: ADENOCARCINOMA OF COLON
  4. LEUCOVORIN [Concomitant]
     Indication: ADENOCARCINOMA OF COLON
  5. IRINOTECAN [Concomitant]
     Indication: METASTASES TO ABDOMINAL CAVITY
  6. XELODA [Concomitant]
     Indication: NEOPLASM PROGRESSION
  7. RADIOTHERAPY [Concomitant]
     Indication: NEOPLASM PROGRESSION
     Dosage: 30 GY, UNK

REACTIONS (12)
  - Renal injury [Unknown]
  - Tubulointerstitial nephritis [Recovering/Resolving]
  - Haematuria [Recovering/Resolving]
  - Oliguria [Unknown]
  - Jaundice [Unknown]
  - Pyrexia [Unknown]
  - Hyperbilirubinaemia [Recovering/Resolving]
  - Thrombocytopenia [Recovering/Resolving]
  - Blood creatine increased [Recovering/Resolving]
  - Blood lactate dehydrogenase increased [Recovering/Resolving]
  - Anaemia [Recovering/Resolving]
  - Abdominal pain [Unknown]
